FAERS Safety Report 9754524 (Version 2)
Quarter: 2013Q4

REPORT INFORMATION
  Report Type: Report from Study
  Country: BE (occurrence: BE)
  Receive Date: 20131213
  Receipt Date: 20131231
  Transmission Date: 20140711
  Serious: Yes (Death)
  Sender: FDA-Public Use
  Company Number: BE-CELGENEUS-013-21880-13115772

PATIENT
  Age: 67 Year
  Sex: Male
  Weight: 77 kg

DRUGS (10)
  1. REVLIMID [Suspect]
     Indication: PLASMA CELL MYELOMA
     Route: 048
     Dates: start: 20130721, end: 20131021
  2. DEXAMETHASONE [Suspect]
     Indication: PLASMA CELL MYELOMA
     Route: 065
     Dates: start: 20130722, end: 20131021
  3. THALIDOMIDE [Concomitant]
     Indication: PLASMA CELL MYELOMA
     Dosage: 100 MILLIGRAM
     Route: 065
     Dates: start: 20130609, end: 20130722
  4. THALIDOMIDE [Concomitant]
     Dosage: 50 MILLIGRAM
     Route: 065
     Dates: start: 20130814, end: 20131115
  5. LIPITOR [Concomitant]
     Indication: HYPERCHOLESTEROLAEMIA
     Dosage: 18 MILLIGRAM
     Route: 065
  6. PANTOMED [Concomitant]
     Indication: PRODUCT USED FOR UNKNOWN INDICATION
     Dosage: 20 MILLIGRAM
     Route: 065
     Dates: start: 20130814, end: 20131115
  7. ZOVIRAX [Concomitant]
     Indication: PRODUCT USED FOR UNKNOWN INDICATION
     Dosage: 800 MILLIGRAM
     Route: 065
     Dates: start: 20130814, end: 20131115
  8. ZYLORIC [Concomitant]
     Indication: PRODUCT USED FOR UNKNOWN INDICATION
     Dosage: 300 MILLIGRAM
     Route: 065
     Dates: start: 20130814, end: 20131115
  9. URARIOL [Concomitant]
     Indication: CONSTIPATION
     Route: 065
     Dates: start: 20130814, end: 20131115
  10. NOLETARDINE [Concomitant]
     Indication: MUCOSAL INFLAMMATION
     Dosage: 4D/D
     Route: 065
     Dates: start: 20130814, end: 20131115

REACTIONS (2)
  - Renal failure [Fatal]
  - Plasma cell myeloma [Fatal]
